FAERS Safety Report 15030288 (Version 3)
Quarter: 2019Q1

REPORT INFORMATION
  Report Type: Spontaneous
  Country: US (occurrence: US)
  Receive Date: 20180619
  Receipt Date: 20190308
  Transmission Date: 20190417
  Serious: No
  Sender: FDA-Public Use
  Company Number: US-PFIZER INC-2018245261

PATIENT
  Age: 71 Year
  Sex: Female

DRUGS (1)
  1. XELJANZ XR [Suspect]
     Active Substance: TOFACITINIB CITRATE
     Dosage: 11 MG, UNK

REACTIONS (11)
  - Feeling abnormal [Unknown]
  - Neuralgia [Unknown]
  - Sensitivity to weather change [Unknown]
  - Pain in extremity [Unknown]
  - Deformity [Unknown]
  - Drug effect incomplete [Unknown]
  - Condition aggravated [Unknown]
  - Pain [Unknown]
  - Lipoma [Unknown]
  - Arthralgia [Unknown]
  - Bedridden [Unknown]

NARRATIVE: CASE EVENT DATE: 201811
